FAERS Safety Report 25075148 (Version 1)
Quarter: 2025Q1

REPORT INFORMATION
  Report Type: Spontaneous
  Country: US (occurrence: None)
  Receive Date: 20250313
  Receipt Date: 20250313
  Transmission Date: 20250408
  Serious: Yes (Hospitalization, Other)
  Sender: FDA-CTU
  Company Number: None

PATIENT
  Age: 59 Year
  Sex: Female
  Weight: 59.4 kg

DRUGS (7)
  1. MIEBO [Suspect]
     Active Substance: PERFLUOROHEXYLOCTANE
     Indication: Dry eye
     Dosage: OTHER QUANTITY : 4 DROP(S);?FREQUENCY : EVERY 6 HOURS;?
     Route: 047
     Dates: start: 20250305, end: 20250312
  2. DEPAKOTE [Concomitant]
     Active Substance: DIVALPROEX SODIUM
  3. Trazedone [Concomitant]
  4. CLONAZEPAM [Concomitant]
     Active Substance: CLONAZEPAM
  5. FLUVOXAMINE [Concomitant]
     Active Substance: FLUVOXAMINE
  6. PROPRANOLOL HYDROCHLORIDE [Concomitant]
     Active Substance: PROPRANOLOL HYDROCHLORIDE
  7. TYLENOL [Concomitant]
     Active Substance: ACETAMINOPHEN

REACTIONS (8)
  - Musculoskeletal stiffness [None]
  - Tunnel vision [None]
  - Strabismus [None]
  - Tremor [None]
  - Cold sweat [None]
  - Palpitations [None]
  - Migraine [None]
  - Seizure [None]

NARRATIVE: CASE EVENT DATE: 20250312
